FAERS Safety Report 4627120-0 (Version None)
Quarter: 2005Q2

REPORT INFORMATION
  Report Type: 
  Country: None (occurrence: None)
  Receive Date: 20050405
  Receipt Date: 20041111
  Transmission Date: 20051028
  Serious: Yes (Other)
  Sender: FDA-Public Use
  Company Number: US-ROCHE-386255

PATIENT
  Age: 36 Year
  Sex: Female
  Weight: 68 kg

DRUGS (3)
  1. KLONOPIN [Suspect]
     Indication: ANXIETY
     Route: 048
     Dates: start: 20020615, end: 20040315
  2. KLONOPIN [Suspect]
     Dosage: VARIOUS DOSES.
     Route: 048
  3. PAXIL [Concomitant]
     Indication: ANXIETY
     Route: 048

REACTIONS (4)
  - BLOOD PROLACTIN INCREASED [None]
  - DRUG WITHDRAWAL SYNDROME [None]
  - GALACTORRHOEA [None]
  - SUICIDAL IDEATION [None]
